FAERS Safety Report 18440986 (Version 1)
Quarter: 2020Q4

REPORT INFORMATION
  Report Type: Spontaneous
  Country: US (occurrence: US)
  Receive Date: 20201029
  Receipt Date: 20201029
  Transmission Date: 20210114
  Serious: No
  Sender: FDA-Public Use
  Company Number: None

PATIENT
  Age: 93 Year
  Sex: Female
  Weight: 53.55 kg

DRUGS (8)
  1. ALLERFLOW [Concomitant]
  2. WARFARIN [Concomitant]
     Active Substance: WARFARIN
  3. NITROFURANTOIN. [Suspect]
     Active Substance: NITROFURANTOIN
     Indication: CYSTITIS
     Dosage: ?          QUANTITY:1 TABLET(S);?
     Route: 048
  4. LATANOPROST. [Concomitant]
     Active Substance: LATANOPROST
  5. DORZOLAMIDE-TIMOLOL [Concomitant]
     Active Substance: DORZOLAMIDE\TIMOLOL
  6. PROBIOTIC [Concomitant]
     Active Substance: PROBIOTICS NOS
  7. BRIMONIDINE [Concomitant]
     Active Substance: BRIMONIDINE TARTRATE
  8. LEVOTHYROXINE. [Concomitant]
     Active Substance: LEVOTHYROXINE

REACTIONS (2)
  - Therapy cessation [None]
  - Rash erythematous [None]

NARRATIVE: CASE EVENT DATE: 20200923
